FAERS Safety Report 15836009 (Version 2)
Quarter: 2019Q1

REPORT INFORMATION
  Report Type: Spontaneous
  Country: CA (occurrence: CA)
  Receive Date: 20190117
  Receipt Date: 20190212
  Transmission Date: 20190417
  Serious: Yes (Congenital Anomaly, Other)
  Sender: FDA-Public Use
  Company Number: CA-APOTEX-2019AP006593

PATIENT
  Sex: Female

DRUGS (1)
  1. PAXIL [Suspect]
     Active Substance: PAROXETINE HYDROCHLORIDE
     Indication: DEPRESSION
     Dosage: 20 MG, QD
     Route: 065

REACTIONS (8)
  - Foetal exposure during pregnancy [Unknown]
  - Hemihypertrophy [Unknown]
  - Retinopathy of prematurity [Unknown]
  - Anaemia neonatal [Unknown]
  - Foetal distress syndrome [Unknown]
  - Tachycardia foetal [Unknown]
  - Foetal heart rate deceleration abnormality [Unknown]
  - Congenital skin dimples [Unknown]
